FAERS Safety Report 7610715-X (Version None)
Quarter: 2011Q3

REPORT INFORMATION
  Report Type: 
  Country: None (occurrence: None)
  Receive Date: 20110715
  Receipt Date: 20110707
  Transmission Date: 20111222
  Serious: Yes (Other)
  Sender: FDA-Public Use
  Company Number: JP-PFIZER INC-2011157244

PATIENT
  Age: 78 Year
  Sex: Male

DRUGS (4)
  1. PLETAL [Concomitant]
  2. AMIODARONE HCL [Suspect]
     Indication: VENTRICULAR FIBRILLATION
     Dosage: UNK
     Route: 048
     Dates: start: 20110601
  3. FAMOTIDINE [Concomitant]
  4. ADALAT CC [Concomitant]

REACTIONS (2)
  - ALTERED STATE OF CONSCIOUSNESS [None]
  - HYPOGLYCAEMIA [None]
